FAERS Safety Report 14682695 (Version 1)
Quarter: 2018Q1

REPORT INFORMATION
  Report Type: Spontaneous
  Country: LB (occurrence: LB)
  Receive Date: 20180327
  Receipt Date: 20180327
  Transmission Date: 20180509
  Serious: Yes (Other)
  Sender: FDA-Public Use
  Company Number: LB-SUN PHARMACEUTICAL INDUSTRIES LTD-2017R1-151851

PATIENT
  Age: 51 Year
  Sex: Male

DRUGS (1)
  1. METHOTREXATE. [Suspect]
     Active Substance: METHOTREXATE
     Indication: PSORIASIS
     Dosage: 20 MG, DAILY
     Route: 065

REACTIONS (9)
  - Skin plaque [Recovering/Resolving]
  - Inappropriate schedule of drug administration [Unknown]
  - Neutropenia [Recovering/Resolving]
  - Toxicity to various agents [Recovering/Resolving]
  - Pyrexia [Recovering/Resolving]
  - Overdose [Unknown]
  - Condition aggravated [Recovering/Resolving]
  - Mucocutaneous ulceration [Recovering/Resolving]
  - Asthenia [Recovering/Resolving]
